FAERS Safety Report 25918159 (Version 1)
Quarter: 2025Q4

REPORT INFORMATION
  Report Type: Spontaneous
  Country: US (occurrence: US)
  Receive Date: 20251014
  Receipt Date: 20251014
  Transmission Date: 20260118
  Serious: Yes (Hospitalization, Other)
  Sender: BAXTER
  Company Number: US-BAXTER-2025BAX022328

PATIENT
  Age: 32 Year
  Sex: Male

DRUGS (1)
  1. HEPARIN SODIUM [Suspect]
     Active Substance: HEPARIN SODIUM
     Indication: Thrombosis
     Route: 065

REACTIONS (5)
  - Renal haemorrhage [Recovered/Resolved]
  - Extravasation [Recovered/Resolved]
  - Flank pain [Recovered/Resolved]
  - Blood loss anaemia [Recovered/Resolved]
  - Renal haematoma [Recovered/Resolved]
